FAERS Safety Report 21605329 (Version 3)
Quarter: 2022Q4

REPORT INFORMATION
  Report Type: Report from Study
  Country: JP (occurrence: JP)
  Receive Date: 20221116
  Receipt Date: 20221123
  Transmission Date: 20230113
  Serious: Yes (Hospitalization)
  Sender: FDA-Public Use
  Company Number: JP-CHUGAI-2022028967

PATIENT
  Age: 61 Year
  Sex: Female
  Weight: 51.8 kg

DRUGS (25)
  1. ATEZOLIZUMAB [Suspect]
     Active Substance: ATEZOLIZUMAB
     Indication: Breast cancer recurrent
     Route: 041
     Dates: start: 20220214
  2. BEVACIZUMAB [Suspect]
     Active Substance: BEVACIZUMAB
     Indication: Breast cancer recurrent
     Route: 041
     Dates: start: 20220214
  3. PACLITAXEL [Suspect]
     Active Substance: PACLITAXEL
     Indication: Breast cancer recurrent
     Route: 041
     Dates: start: 20220214
  4. CALCIUM CARBONATE\CHOLECALCIFEROL\MAGNESIUM CARBONATE [Concomitant]
     Active Substance: CALCIUM CARBONATE\CHOLECALCIFEROL\MAGNESIUM CARBONATE
     Indication: Prophylaxis
     Route: 048
  5. FUROSEMIDE [Concomitant]
     Active Substance: FUROSEMIDE
     Indication: Oedema
     Route: 048
  6. FUROSEMIDE [Concomitant]
     Active Substance: FUROSEMIDE
     Dosage: UNK, QD
     Route: 048
     Dates: start: 20220815
  7. GLYCOSAMINOGLYCANS [Concomitant]
     Active Substance: GLYCOSAMINOGLYCANS
     Indication: Dry skin prophylaxis
     Route: 061
     Dates: start: 20220523
  8. OMEGA-3-ACID ETHYL ESTERS [Concomitant]
     Active Substance: OMEGA-3-ACID ETHYL ESTERS
     Indication: Hyperlipidaemia
     Route: 048
  9. SODIUM GUALENATE [Concomitant]
     Active Substance: SODIUM GUALENATE
     Indication: Antiinflammatory therapy
     Route: 049
  10. ACETAMINOPHEN [Concomitant]
     Active Substance: ACETAMINOPHEN
     Indication: Analgesic therapy
     Route: 048
  11. ACETAMINOPHEN [Concomitant]
     Active Substance: ACETAMINOPHEN
     Indication: Analgesic therapy
  12. PITAVASTATIN CALCIUM [Concomitant]
     Active Substance: PITAVASTATIN CALCIUM
     Indication: Hypercholesterolaemia
     Route: 048
  13. EBASTINE [Concomitant]
     Active Substance: EBASTINE
     Indication: Seasonal allergy
     Route: 048
  14. OLOPATADINE HYDROCHLORIDE [Concomitant]
     Active Substance: OLOPATADINE HYDROCHLORIDE
     Indication: Seasonal allergy
     Route: 047
  15. DENOSUMAB [Concomitant]
     Active Substance: DENOSUMAB
     Indication: Breast cancer recurrent
     Route: 058
  16. DIPHENHYDRAMINE [Concomitant]
     Active Substance: DIPHENHYDRAMINE
     Indication: Chemotherapy side effect prophylaxis
     Dosage: 50 MILLIGRAM, DAY1, 8, 15
     Route: 048
     Dates: start: 20220214
  17. FAMOTIDINE [Concomitant]
     Active Substance: FAMOTIDINE
     Indication: Chemotherapy side effect prophylaxis
     Dosage: 20 MILLIGRAM, DAY1, 8, 15
     Route: 042
     Dates: start: 20220214
  18. FAMOTIDINE [Concomitant]
     Active Substance: FAMOTIDINE
     Indication: Abdominal pain upper
     Route: 048
     Dates: start: 20220221
  19. DEXAMETHASONE SODIUM PHOSPHATE [Concomitant]
     Active Substance: DEXAMETHASONE SODIUM PHOSPHATE
     Indication: Chemotherapy side effect prophylaxis
     Dosage: 6.6 MILLIGRAM, DAY1, 8, 15
     Route: 042
     Dates: start: 20220214
  20. REBAMIPIDE [Concomitant]
     Active Substance: REBAMIPIDE
     Indication: Abdominal pain upper
     Route: 048
     Dates: start: 20220221
  21. METHYLCOBALAMIN [Concomitant]
     Active Substance: METHYLCOBALAMIN
     Indication: Neuropathy peripheral
     Dosage: UNKNOWN
     Route: 048
     Dates: start: 20220228
  22. METOCLOPRAMIDE [Concomitant]
     Active Substance: METOCLOPRAMIDE
     Indication: Nausea
     Dosage: UNKNOWN
     Route: 048
     Dates: start: 20220321
  23. AMLODIPINE [Concomitant]
     Active Substance: AMLODIPINE BESYLATE
     Indication: Hypertension
     Dosage: UNKNOWN
     Route: 048
     Dates: start: 20220329
  24. BETAMETHASONE DIPROPIONATE [Concomitant]
     Active Substance: BETAMETHASONE DIPROPIONATE
     Indication: Paronychia
     Dosage: UNKNOWN
     Route: 061
     Dates: start: 20220613
  25. MOMETASONE FUROATE [Concomitant]
     Active Substance: MOMETASONE FUROATE
     Indication: Eczema
     Dosage: UNK
     Route: 061
     Dates: start: 20220808

REACTIONS (1)
  - Adrenal insufficiency [Recovering/Resolving]

NARRATIVE: CASE EVENT DATE: 20221107
